FAERS Safety Report 7894294-8 (Version None)
Quarter: 2011Q4

REPORT INFORMATION
  Report Type: 
  Country: None (occurrence: None)
  Receive Date: 20111104
  Receipt Date: 20111021
  Transmission Date: 20120403
  Serious: Yes (Hospitalization, Other)
  Sender: FDA-Public Use
  Company Number: GB-WATSON-2011-18206

PATIENT
  Age: 26 Year
  Sex: Female

DRUGS (3)
  1. AZATHIOPRINE [Suspect]
     Indication: MIXED CONNECTIVE TISSUE DISEASE
     Dosage: 50 MG, TID
     Route: 065
  2. HYDROXYCHLOROQUINE SULFATE [Suspect]
     Indication: MIXED CONNECTIVE TISSUE DISEASE
     Dosage: 200 MG, DAILY
     Route: 065
  3. PREDNISOLONE [Suspect]
     Indication: MIXED CONNECTIVE TISSUE DISEASE
     Dosage: 10 MG, DAILY
     Route: 065

REACTIONS (3)
  - ABDOMINAL PAIN [None]
  - RASH [None]
  - HERPES ZOSTER [None]
